FAERS Safety Report 23074794 (Version 2)
Quarter: 2023Q4

REPORT INFORMATION
  Report Type: Spontaneous
  Country: CA (occurrence: CA)
  Receive Date: 20231017
  Receipt Date: 20231219
  Transmission Date: 20240109
  Serious: Yes (Life-Threatening, Hospitalization, Other)
  Sender: FDA-Public Use
  Company Number: CA-BRISTOL-MYERS SQUIBB COMPANY-2023-146384

PATIENT
  Age: 65 Year
  Sex: Male

DRUGS (206)
  1. ELIQUIS [Suspect]
     Active Substance: APIXABAN
     Indication: Product used for unknown indication
  2. ADVAIR HFA [Concomitant]
     Active Substance: FLUTICASONE PROPIONATE\SALMETEROL XINAFOATE
     Indication: Product used for unknown indication
  3. ALENDRONATE SODIUM [Concomitant]
     Active Substance: ALENDRONATE SODIUM
     Indication: Product used for unknown indication
  4. ALENDRONATE SODIUM [Concomitant]
     Active Substance: ALENDRONATE SODIUM
  5. ALENDRONATE SODIUM [Concomitant]
     Active Substance: ALENDRONATE SODIUM
  6. ALENDRONATE SODIUM [Concomitant]
     Active Substance: ALENDRONATE SODIUM
  7. ALENDRONATE SODIUM [Concomitant]
     Active Substance: ALENDRONATE SODIUM
  8. ALENDRONATE SODIUM [Concomitant]
     Active Substance: ALENDRONATE SODIUM
  9. ANORO ELLIPTA [Concomitant]
     Active Substance: UMECLIDINIUM BROMIDE\VILANTEROL TRIFENATATE
     Indication: Product used for unknown indication
     Route: 048
  10. ANORO ELLIPTA [Concomitant]
     Active Substance: UMECLIDINIUM BROMIDE\VILANTEROL TRIFENATATE
     Route: 048
  11. ANORO ELLIPTA [Concomitant]
     Active Substance: UMECLIDINIUM BROMIDE\VILANTEROL TRIFENATATE
     Route: 048
  12. AZATHIOPRINE [Concomitant]
     Active Substance: AZATHIOPRINE
     Indication: Product used for unknown indication
  13. AZATHIOPRINE [Concomitant]
     Active Substance: AZATHIOPRINE
  14. AZATHIOPRINE [Concomitant]
     Active Substance: AZATHIOPRINE
     Dosage: POWDER FOR SOLUTION
     Route: 042
  15. AZATHIOPRINE [Concomitant]
     Active Substance: AZATHIOPRINE
     Dosage: POWDER FOR SOLUTION
     Route: 042
  16. AZATHIOPRINE [Concomitant]
     Active Substance: AZATHIOPRINE
  17. AZATHIOPRINE [Concomitant]
     Active Substance: AZATHIOPRINE
  18. AZATHIOPRINE [Concomitant]
     Active Substance: AZATHIOPRINE
  19. AZATHIOPRINE [Concomitant]
     Active Substance: AZATHIOPRINE
  20. AZATHIOPRINE [Concomitant]
     Active Substance: AZATHIOPRINE
  21. AZATHIOPRINE [Concomitant]
     Active Substance: AZATHIOPRINE
     Dosage: POWDER FOR SOLUTION
     Route: 042
  22. AZATHIOPRINE [Concomitant]
     Active Substance: AZATHIOPRINE
     Dosage: POWDER FOR SOLUTION INTRAVENOUS
     Route: 048
  23. AZATHIOPRINE [Concomitant]
     Active Substance: AZATHIOPRINE
  24. AZATHIOPRINE [Concomitant]
     Active Substance: AZATHIOPRINE
     Dosage: POWDER FOR SOLUTION
     Route: 042
  25. AZATHIOPRINE [Concomitant]
     Active Substance: AZATHIOPRINE
  26. AZITHROMYCIN [Concomitant]
     Active Substance: AZITHROMYCIN
     Indication: Product used for unknown indication
  27. AZITHROMYCIN [Concomitant]
     Active Substance: AZITHROMYCIN
  28. AZITHROMYCIN [Concomitant]
     Active Substance: AZITHROMYCIN
  29. AZITHROMYCIN [Concomitant]
     Active Substance: AZITHROMYCIN
  30. AZITHROMYCIN [Concomitant]
     Active Substance: AZITHROMYCIN
  31. AZITHROMYCIN [Concomitant]
     Active Substance: AZITHROMYCIN
  32. AZITHROMYCIN [Concomitant]
     Active Substance: AZITHROMYCIN
  33. AZITHROMYCIN DIHYDRATE [Concomitant]
     Active Substance: AZITHROMYCIN DIHYDRATE
     Indication: Product used for unknown indication
  34. AZITHROMYCIN DIHYDRATE [Concomitant]
     Active Substance: AZITHROMYCIN DIHYDRATE
  35. BETA GLUCAN [Concomitant]
     Active Substance: BETA GLUCAN
     Indication: Product used for unknown indication
  36. BETAMETHASONE [Concomitant]
     Active Substance: BETAMETHASONE\BETAMETHASONE DIPROPIONATE
     Indication: Product used for unknown indication
  37. BETAMETHASONE DIPROPIONATE [Concomitant]
     Active Substance: BETAMETHASONE DIPROPIONATE
     Indication: Product used for unknown indication
  38. BUDESONIDE [Concomitant]
     Active Substance: BUDESONIDE
     Indication: Product used for unknown indication
  39. BUDESONIDE\FORMOTEROL FUMARATE [Concomitant]
     Active Substance: BUDESONIDE\FORMOTEROL FUMARATE
     Indication: Product used for unknown indication
  40. CALCIUM CARBONATE [Concomitant]
     Active Substance: CALCIUM CARBONATE
     Indication: Product used for unknown indication
  41. CALCIUM CARBONATE [Concomitant]
     Active Substance: CALCIUM CARBONATE
  42. CALCIUM CARBONATE [Concomitant]
     Active Substance: CALCIUM CARBONATE
  43. CALCIUM CARBONATE [Concomitant]
     Active Substance: CALCIUM CARBONATE
  44. CANDESARTAN [Concomitant]
     Active Substance: CANDESARTAN
     Indication: Product used for unknown indication
     Route: 048
  45. CANDESARTAN [Concomitant]
     Active Substance: CANDESARTAN
  46. CANDESARTAN [Concomitant]
     Active Substance: CANDESARTAN
     Route: 048
  47. CANDESARTAN CILEXETIL [Concomitant]
     Active Substance: CANDESARTAN CILEXETIL
     Indication: Product used for unknown indication
  48. CANDESARTAN CILEXETIL [Concomitant]
     Active Substance: CANDESARTAN CILEXETIL
     Route: 048
  49. CANDESARTAN CILEXETIL [Concomitant]
     Active Substance: CANDESARTAN CILEXETIL
  50. CANDESARTAN CILEXETIL [Concomitant]
     Active Substance: CANDESARTAN CILEXETIL
  51. CANDESARTAN CILEXETIL AND HYDROCHLOROTHIAZIDE [Concomitant]
     Active Substance: CANDESARTAN CILEXETIL\HYDROCHLOROTHIAZIDE
     Indication: Product used for unknown indication
  52. CANDESARTAN CILEXETIL AND HYDROCHLOROTHIAZIDE [Concomitant]
     Active Substance: CANDESARTAN CILEXETIL\HYDROCHLOROTHIAZIDE
  53. CANDESARTAN CILEXETIL AND HYDROCHLOROTHIAZIDE [Concomitant]
     Active Substance: CANDESARTAN CILEXETIL\HYDROCHLOROTHIAZIDE
     Route: 048
  54. CANDESARTAN CILEXETIL AND HYDROCHLOROTHIAZIDE [Concomitant]
     Active Substance: CANDESARTAN CILEXETIL\HYDROCHLOROTHIAZIDE
     Route: 048
  55. CEFUROXIME [Concomitant]
     Active Substance: CEFUROXIME
     Indication: Product used for unknown indication
  56. CEFUROXIME [Concomitant]
     Active Substance: CEFUROXIME
  57. CEFUROXIME [Concomitant]
     Active Substance: CEFUROXIME
  58. CEFUROXIME [Concomitant]
     Active Substance: CEFUROXIME
  59. CEFUROXIME [Concomitant]
     Active Substance: CEFUROXIME
  60. CEFUROXIME [Concomitant]
     Active Substance: CEFUROXIME
  61. CEFUROXIME [Concomitant]
     Active Substance: CEFUROXIME
  62. CEFUROXIME [Concomitant]
     Active Substance: CEFUROXIME
  63. CEFUROXIME [Concomitant]
     Active Substance: CEFUROXIME
  64. CEFUROXIME AXETIL [Concomitant]
     Active Substance: CEFUROXIME AXETIL
     Indication: Product used for unknown indication
  65. CEFUROXIME AXETIL [Concomitant]
     Active Substance: CEFUROXIME AXETIL
  66. CEFUROXIME AXETIL [Concomitant]
     Active Substance: CEFUROXIME AXETIL
  67. CEFUROXIME AXETIL [Concomitant]
     Active Substance: CEFUROXIME AXETIL
  68. CEFUROXIME AXETIL [Concomitant]
     Active Substance: CEFUROXIME AXETIL
  69. CEFUROXIME AXETIL [Concomitant]
     Active Substance: CEFUROXIME AXETIL
  70. CEFUROXIME AXETIL [Concomitant]
     Active Substance: CEFUROXIME AXETIL
  71. CEFUROXIME AXETIL [Concomitant]
     Active Substance: CEFUROXIME AXETIL
  72. CEFUROXIME AXETIL [Concomitant]
     Active Substance: CEFUROXIME AXETIL
  73. CEFUROXIME AXETIL [Concomitant]
     Active Substance: CEFUROXIME AXETIL
  74. CEPHALEXIN [Concomitant]
     Active Substance: CEPHALEXIN
     Indication: Product used for unknown indication
  75. CICLESONIDE [Concomitant]
     Active Substance: CICLESONIDE
     Indication: Product used for unknown indication
  76. CLOTRIMAZOLE [Concomitant]
     Active Substance: CLOTRIMAZOLE
     Indication: Product used for unknown indication
  77. DILTIAZEM [Concomitant]
     Active Substance: DILTIAZEM
     Indication: Product used for unknown indication
  78. DOMPERIDONE MALEATE [Concomitant]
     Active Substance: DOMPERIDONE MALEATE
     Indication: Product used for unknown indication
  79. DOMPERIDONE MALEATE [Concomitant]
     Active Substance: DOMPERIDONE MALEATE
  80. DOMPERIDONE MALEATE [Concomitant]
     Active Substance: DOMPERIDONE MALEATE
  81. DOMPERIDONE MALEATE [Concomitant]
     Active Substance: DOMPERIDONE MALEATE
  82. DOMPERIDONE MALEATE [Concomitant]
     Active Substance: DOMPERIDONE MALEATE
  83. DOMPERIDONE MALEATE [Concomitant]
     Active Substance: DOMPERIDONE MALEATE
  84. DOMPERIDONE MALEATE [Concomitant]
     Active Substance: DOMPERIDONE MALEATE
  85. DOMPERIDONE MALEATE [Concomitant]
     Active Substance: DOMPERIDONE MALEATE
  86. DOXAZOSIN [Concomitant]
     Active Substance: DOXAZOSIN MESYLATE
     Indication: Product used for unknown indication
  87. DUTASTERIDE [Concomitant]
     Active Substance: DUTASTERIDE
     Indication: Product used for unknown indication
  88. ERGOCALCIFEROL [Concomitant]
     Active Substance: ERGOCALCIFEROL
     Indication: Product used for unknown indication
  89. ESCITALOPRAM [Concomitant]
     Active Substance: ESCITALOPRAM OXALATE
     Indication: Product used for unknown indication
  90. FLOMAX [Concomitant]
     Active Substance: TAMSULOSIN HYDROCHLORIDE
     Indication: Product used for unknown indication
     Dosage: SUSTAINED-RELEASE
  91. FLOMAX [Concomitant]
     Active Substance: TAMSULOSIN HYDROCHLORIDE
     Dosage: SUSTAINED-RELEASE
  92. FORMOTEROL [Concomitant]
     Active Substance: FORMOTEROL
     Indication: Product used for unknown indication
     Route: 055
  93. FUROSEMIDE [Concomitant]
     Active Substance: FUROSEMIDE
     Indication: Product used for unknown indication
  94. GLUCAGON [Concomitant]
     Active Substance: GLUCAGON\GLUCAGON HYDROCHLORIDE\WATER
     Indication: Product used for unknown indication
     Dosage: KIT
  95. GLUCAGON [Concomitant]
     Active Substance: GLUCAGON\GLUCAGON HYDROCHLORIDE\WATER
     Dosage: KIT
  96. HYDROCHLOROTHIAZIDE [Concomitant]
     Active Substance: HYDROCHLOROTHIAZIDE
     Indication: Product used for unknown indication
  97. IMURAN [Concomitant]
     Active Substance: AZATHIOPRINE
     Indication: Product used for unknown indication
  98. INSULIN GLARGINE [Concomitant]
     Active Substance: INSULIN GLARGINE
     Indication: Product used for unknown indication
     Route: 058
  99. INSULIN GLARGINE [Concomitant]
     Active Substance: INSULIN GLARGINE
     Route: 058
  100. LASIX [Concomitant]
     Active Substance: FUROSEMIDE
     Indication: Product used for unknown indication
  101. LEVOFLOXACIN [Concomitant]
     Active Substance: LEVOFLOXACIN
     Indication: Product used for unknown indication
  102. LEVOFLOXACIN [Concomitant]
     Active Substance: LEVOFLOXACIN
  103. LEVOFLOXACIN [Concomitant]
     Active Substance: LEVOFLOXACIN
  104. LEVOFLOXACIN [Concomitant]
     Active Substance: LEVOFLOXACIN
  105. LEVOFLOXACIN [Concomitant]
     Active Substance: LEVOFLOXACIN
  106. LEVOFLOXACIN [Concomitant]
     Active Substance: LEVOFLOXACIN
  107. LEVOFLOXACIN HEMIHYDRATE [Concomitant]
     Active Substance: LEVOFLOXACIN
     Indication: Product used for unknown indication
  108. LEVOFLOXACIN HEMIHYDRATE [Concomitant]
     Active Substance: LEVOFLOXACIN
  109. LEVOFLOXACIN HEMIHYDRATE [Concomitant]
     Active Substance: LEVOFLOXACIN
  110. LEVOFLOXACIN HEMIHYDRATE [Concomitant]
     Active Substance: LEVOFLOXACIN
  111. LEVOTHYROXINE SODIUM [Concomitant]
     Active Substance: LEVOTHYROXINE SODIUM
     Indication: Product used for unknown indication
  112. MAGNESIUM OXIDE [Concomitant]
     Active Substance: MAGNESIUM OXIDE
     Indication: Product used for unknown indication
  113. MAGNESIUM OXIDE [Concomitant]
     Active Substance: MAGNESIUM OXIDE
  114. MAGNESIUM OXIDE [Concomitant]
     Active Substance: MAGNESIUM OXIDE
  115. MAGNESIUM OXIDE [Concomitant]
     Active Substance: MAGNESIUM OXIDE
  116. MAGNESIUM OXIDE [Concomitant]
     Active Substance: MAGNESIUM OXIDE
  117. MAGNESIUM OXIDE [Concomitant]
     Active Substance: MAGNESIUM OXIDE
  118. MAGNESIUM OXIDE [Concomitant]
     Active Substance: MAGNESIUM OXIDE
  119. MAGNESIUM OXIDE [Concomitant]
     Active Substance: MAGNESIUM OXIDE
  120. MAGNESIUM OXIDE [Concomitant]
     Active Substance: MAGNESIUM OXIDE
  121. METFORMIN [Concomitant]
     Active Substance: METFORMIN HYDROCHLORIDE
     Indication: Product used for unknown indication
  122. METFORMIN [Concomitant]
     Active Substance: METFORMIN HYDROCHLORIDE
  123. METFORMIN [Concomitant]
     Active Substance: METFORMIN HYDROCHLORIDE
  124. METFORMIN [Concomitant]
     Active Substance: METFORMIN HYDROCHLORIDE
  125. METFORMIN [Concomitant]
     Active Substance: METFORMIN HYDROCHLORIDE
  126. METFORMIN [Concomitant]
     Active Substance: METFORMIN HYDROCHLORIDE
  127. METFORMIN [Concomitant]
     Active Substance: METFORMIN HYDROCHLORIDE
  128. METFORMIN [Concomitant]
     Active Substance: METFORMIN HYDROCHLORIDE
  129. METFORMIN [Concomitant]
     Active Substance: METFORMIN HYDROCHLORIDE
  130. METFORMIN [Concomitant]
     Active Substance: METFORMIN HYDROCHLORIDE
  131. METFORMIN [Concomitant]
     Active Substance: METFORMIN HYDROCHLORIDE
  132. MONTELUKAST SODIUM [Concomitant]
     Active Substance: MONTELUKAST SODIUM
     Indication: Product used for unknown indication
  133. MOXIFLOXACIN [Concomitant]
     Active Substance: MOXIFLOXACIN
     Indication: Product used for unknown indication
  134. PANTOPRAZOLE SODIUM [Concomitant]
     Active Substance: PANTOPRAZOLE SODIUM
     Indication: Product used for unknown indication
     Dosage: DELAYED-RELEASE
  135. PANTOPRAZOLE SODIUM [Concomitant]
     Active Substance: PANTOPRAZOLE SODIUM
     Dosage: DELAYED-RELEASE
  136. PANTOPRAZOLE SODIUM [Concomitant]
     Active Substance: PANTOPRAZOLE SODIUM
     Dosage: DELAYED-RELEASE
  137. NOVORAPID [Concomitant]
     Active Substance: INSULIN ASPART
     Indication: Product used for unknown indication
     Route: 058
  138. OMNARIS [Concomitant]
     Active Substance: CICLESONIDE
     Indication: Product used for unknown indication
     Dosage: SPRAY METERED DOSE
  139. PANTOPRAZOLE [Concomitant]
     Active Substance: PANTOPRAZOLE
     Indication: Product used for unknown indication
  140. PANTOPRAZOLE [Concomitant]
     Active Substance: PANTOPRAZOLE
  141. PANTOPRAZOLE [Concomitant]
     Active Substance: PANTOPRAZOLE
  142. PANTOPRAZOLE [Concomitant]
     Active Substance: PANTOPRAZOLE
  143. PANTOPRAZOLE [Concomitant]
     Active Substance: PANTOPRAZOLE
  144. PANTOPRAZOLE [Concomitant]
     Active Substance: PANTOPRAZOLE
  145. PANTOPRAZOLE [Concomitant]
     Active Substance: PANTOPRAZOLE
  146. PANTOPRAZOLE MAGNESIUM [Concomitant]
     Active Substance: PANTOPRAZOLE MAGNESIUM
     Indication: Product used for unknown indication
  147. PANTOPRAZOLE SODIUM ANHYDROUS [Concomitant]
     Active Substance: PANTOPRAZOLE SODIUM ANHYDROUS
     Indication: Product used for unknown indication
  148. PANTOPRAZOLE SODIUM ANHYDROUS [Concomitant]
     Active Substance: PANTOPRAZOLE SODIUM ANHYDROUS
  149. PANTOPRAZOLE SODIUM ANHYDROUS [Concomitant]
     Active Substance: PANTOPRAZOLE SODIUM ANHYDROUS
  150. PANTOPRAZOLE SODIUM ANHYDROUS [Concomitant]
     Active Substance: PANTOPRAZOLE SODIUM ANHYDROUS
  151. PANTOPRAZOLE SODIUM ANHYDROUS [Concomitant]
     Active Substance: PANTOPRAZOLE SODIUM ANHYDROUS
  152. AZITHROMYCIN ANHYDROUS [Concomitant]
     Active Substance: AZITHROMYCIN ANHYDROUS
     Indication: Product used for unknown indication
  153. LEVOFLOXACIN [Concomitant]
     Active Substance: LEVOFLOXACIN
     Indication: Product used for unknown indication
     Dosage: SINGLE USE AMPOULES
  154. LEVOFLOXACIN [Concomitant]
     Active Substance: LEVOFLOXACIN
     Indication: Product used for unknown indication
  155. SENNA LEAF [Concomitant]
     Active Substance: SENNA LEAF
     Indication: Product used for unknown indication
  156. SENNA LEAF [Concomitant]
     Active Substance: SENNA LEAF
     Indication: Product used for unknown indication
     Route: 048
  157. SENNOSIDES [Concomitant]
     Active Substance: SENNOSIDES
     Indication: Product used for unknown indication
  158. SPIRIVA [Concomitant]
     Active Substance: TIOTROPIUM BROMIDE MONOHYDRATE
     Indication: Product used for unknown indication
  159. SPIRIVA [Concomitant]
     Active Substance: TIOTROPIUM BROMIDE MONOHYDRATE
  160. SULFADIAZINE\TRIMETHOPRIM [Concomitant]
     Active Substance: SULFADIAZINE\TRIMETHOPRIM
     Indication: Product used for unknown indication
  161. SULFADIAZINE\TRIMETHOPRIM [Concomitant]
     Active Substance: SULFADIAZINE\TRIMETHOPRIM
  162. SULFADIAZINE\TRIMETHOPRIM [Concomitant]
     Active Substance: SULFADIAZINE\TRIMETHOPRIM
  163. SULFAMETHOXAZOLE AND TRIMETHOPRIM [Concomitant]
     Active Substance: SULFAMETHOXAZOLE\TRIMETHOPRIM
     Indication: Product used for unknown indication
     Route: 042
  164. SULFAMETHOXAZOLE AND TRIMETHOPRIM [Concomitant]
     Active Substance: SULFAMETHOXAZOLE\TRIMETHOPRIM
  165. SULFAMETHOXAZOLE AND TRIMETHOPRIM [Concomitant]
     Active Substance: SULFAMETHOXAZOLE\TRIMETHOPRIM
  166. SULFAMETHOXAZOLE AND TRIMETHOPRIM [Concomitant]
     Active Substance: SULFAMETHOXAZOLE\TRIMETHOPRIM
  167. SULFAMETHOXAZOLE AND TRIMETHOPRIM [Concomitant]
     Active Substance: SULFAMETHOXAZOLE\TRIMETHOPRIM
     Route: 042
  168. SULFADIAZINE\TRIMETHOPRIM [Concomitant]
     Active Substance: SULFADIAZINE\TRIMETHOPRIM
     Indication: Product used for unknown indication
  169. PANTOPRAZOLE MAGNESIUM [Concomitant]
     Active Substance: PANTOPRAZOLE MAGNESIUM
     Indication: Product used for unknown indication
  170. PANTOPRAZOLE MAGNESIUM [Concomitant]
     Active Substance: PANTOPRAZOLE MAGNESIUM
  171. PANTOPRAZOLE MAGNESIUM [Concomitant]
     Active Substance: PANTOPRAZOLE MAGNESIUM
  172. PANTOPRAZOLE MAGNESIUM [Concomitant]
     Active Substance: PANTOPRAZOLE MAGNESIUM
  173. PANTOPRAZOLE MAGNESIUM [Concomitant]
     Active Substance: PANTOPRAZOLE MAGNESIUM
  174. TAMSULOSIN [Concomitant]
     Active Substance: TAMSULOSIN
     Indication: Product used for unknown indication
  175. TAMSULOSIN [Concomitant]
     Active Substance: TAMSULOSIN
  176. TAMSULOSIN [Concomitant]
     Active Substance: TAMSULOSIN
  177. TAMSULOSIN [Concomitant]
     Active Substance: TAMSULOSIN
  178. TAMSULOSIN [Concomitant]
     Active Substance: TAMSULOSIN
  179. TAMSULOSIN [Concomitant]
     Active Substance: TAMSULOSIN
  180. TIAZAC [Concomitant]
     Active Substance: DILTIAZEM HYDROCHLORIDE
     Indication: Product used for unknown indication
  181. TIOTROPIUM BROMIDE [Concomitant]
     Active Substance: TIOTROPIUM BROMIDE
     Indication: Product used for unknown indication
  182. TRELEGY ELLIPTA [Concomitant]
     Active Substance: FLUTICASONE FUROATE\UMECLIDINIUM BROMIDE\VILANTEROL TRIFENATATE
     Indication: Product used for unknown indication
  183. TRELEGY ELLIPTA [Concomitant]
     Active Substance: FLUTICASONE FUROATE\UMECLIDINIUM BROMIDE\VILANTEROL TRIFENATATE
  184. TRELEGY ELLIPTA [Concomitant]
     Active Substance: FLUTICASONE FUROATE\UMECLIDINIUM BROMIDE\VILANTEROL TRIFENATATE
  185. UMECLIDINIUM BROMIDE [Concomitant]
     Active Substance: UMECLIDINIUM BROMIDE
     Indication: Product used for unknown indication
  186. UMECLIDINIUM BROMIDE [Concomitant]
     Active Substance: UMECLIDINIUM BROMIDE
  187. UMECLIDINIUM BROMIDE\VILANTEROL TRIFENATATE [Concomitant]
     Active Substance: UMECLIDINIUM BROMIDE\VILANTEROL TRIFENATATE
     Indication: Product used for unknown indication
  188. UMECLIDINIUM BROMIDE\VILANTEROL TRIFENATATE [Concomitant]
     Active Substance: UMECLIDINIUM BROMIDE\VILANTEROL TRIFENATATE
  189. UMECLIDINIUM BROMIDE\VILANTEROL TRIFENATATE [Concomitant]
     Active Substance: UMECLIDINIUM BROMIDE\VILANTEROL TRIFENATATE
  190. CHOLECALCIFEROL [Concomitant]
     Active Substance: CHOLECALCIFEROL
     Indication: Product used for unknown indication
  191. VITAMIN D3 [Concomitant]
     Active Substance: CHOLECALCIFEROL
     Indication: Product used for unknown indication
  192. ZENHALE [Concomitant]
     Active Substance: FORMOTEROL FUMARATE\MOMETASONE FUROATE
     Indication: Product used for unknown indication
     Dosage: METERED DOSE
  193. AMOXICILLIN TRIHYDRATE AND POTASSIUM CLAVULANATE [AMOXICILLIN;CLAVULAN [Concomitant]
     Indication: Product used for unknown indication
  194. BETAMETHASONE DIPROPIONATE\CLOTRIMAZOLE\GENTAMICIN SULFATE [Concomitant]
     Active Substance: BETAMETHASONE DIPROPIONATE\CLOTRIMAZOLE\GENTAMICIN SULFATE
     Indication: Product used for unknown indication
  195. BREO ELLIPTA [Concomitant]
     Active Substance: FLUTICASONE FUROATE\VILANTEROL TRIFENATATE
     Indication: Product used for unknown indication
     Route: 055
  196. DOXAZOSIN MESYLATE [Concomitant]
     Active Substance: DOXAZOSIN MESYLATE
     Indication: Product used for unknown indication
  197. LEVOTHYROXINE [Concomitant]
     Active Substance: LEVOTHYROXINE
     Indication: Product used for unknown indication
  198. ESCITALOPRAM OXALATE [Concomitant]
     Active Substance: ESCITALOPRAM OXALATE
     Indication: Product used for unknown indication
  199. LIRAGLUTIDE [Concomitant]
     Active Substance: LIRAGLUTIDE
     Indication: Product used for unknown indication
  200. MORNIFLUMATE [Concomitant]
     Active Substance: MORNIFLUMATE
     Indication: Product used for unknown indication
  201. NUCALA [Concomitant]
     Active Substance: MEPOLIZUMAB
     Indication: Product used for unknown indication
  202. PENICILLIN V POTASSIUM [Concomitant]
     Active Substance: PENICILLIN V POTASSIUM
     Indication: Product used for unknown indication
  203. ROSUVASTATIN [Concomitant]
     Active Substance: ROSUVASTATIN
     Indication: Product used for unknown indication
     Route: 058
  204. RUPATADINE [Concomitant]
     Active Substance: RUPATADINE
     Indication: Product used for unknown indication
  205. SERTRALINE HYDROCHLORIDE [Concomitant]
     Active Substance: SERTRALINE HYDROCHLORIDE
     Indication: Product used for unknown indication
  206. VILANTEROL TRIFENATATE [Concomitant]
     Active Substance: VILANTEROL TRIFENATATE
     Indication: Product used for unknown indication

REACTIONS (36)
  - Anxiety [Unknown]
  - Arteriosclerosis [Unknown]
  - Arteriosclerosis coronary artery [Unknown]
  - Asthma [Unknown]
  - Condition aggravated [Unknown]
  - Conjunctivitis allergic [Unknown]
  - Dust allergy [Unknown]
  - Dyspnoea [Unknown]
  - Eosinophilic granulomatosis with polyangiitis [Unknown]
  - Full blood count abnormal [Unknown]
  - Haemoptysis [Unknown]
  - Hypothyroidism [Unknown]
  - Hypoxia [Unknown]
  - Loss of personal independence in daily activities [Unknown]
  - Lung disorder [Unknown]
  - Mite allergy [Unknown]
  - Mycotic allergy [Unknown]
  - Neuritis [Unknown]
  - Neurological symptom [Unknown]
  - Nodule [Unknown]
  - Normochromic normocytic anaemia [Unknown]
  - Obstructive airways disorder [Unknown]
  - Pain in extremity [Unknown]
  - Productive cough [Unknown]
  - Respiratory symptom [Unknown]
  - Sleep disorder due to a general medical condition [Unknown]
  - Spirometry abnormal [Unknown]
  - Therapeutic product effect incomplete [Unknown]
  - Wheezing [Unknown]
  - Adverse event [Unknown]
  - Thrombosis [Unknown]
  - Vasculitis [Unknown]
  - Pulmonary alveolar haemorrhage [Unknown]
  - Pulmonary embolism [Unknown]
  - Pulmonary fibrosis [Unknown]
  - Pulmonary vasculitis [Unknown]
